FAERS Safety Report 7742456-2 (Version None)
Quarter: 2011Q3

REPORT INFORMATION
  Report Type: 
  Country: None (occurrence: None)
  Receive Date: 20110907
  Receipt Date: 20110907
  Transmission Date: 20111222
  Serious: Yes (Hospitalization, Other)
  Sender: FDA-Public Use
  Company Number: None

PATIENT
  Age: 57 Year
  Sex: Male
  Weight: 88.3 kg

DRUGS (1)
  1. DAPTOMYCIN [Suspect]
     Dosage: 750 MG EVERY DAY IV
     Route: 042
     Dates: start: 20110823, end: 20110831

REACTIONS (1)
  - RHABDOMYOLYSIS [None]
